FAERS Safety Report 16251491 (Version 1)
Quarter: 2019Q2

REPORT INFORMATION
  Report Type: Spontaneous
  Country: US (occurrence: US)
  Receive Date: 20190427
  Receipt Date: 20190427
  Transmission Date: 20190711
  Serious: Yes (Hospitalization)
  Sender: FDA-Public Use
  Company Number: None

PATIENT
  Sex: Female
  Weight: 121.5 kg

DRUGS (12)
  1. FLUTICASONE. [Concomitant]
     Active Substance: FLUTICASONE
  2. LIDOCAINE. [Concomitant]
     Active Substance: LIDOCAINE
  3. SYNTHROID [Suspect]
     Active Substance: LEVOTHYROXINE SODIUM
  4. NAPROXEN. [Concomitant]
     Active Substance: NAPROXEN
  5. CYCLOBENZAPRINE. [Concomitant]
     Active Substance: CYCLOBENZAPRINE
  6. LEVOXYL [Suspect]
     Active Substance: LEVOTHYROXINE SODIUM
     Indication: POST PROCEDURAL HYPOTHYROIDISM
     Dosage: ?          QUANTITY:1 CAPSULE(S);?
     Route: 048
  7. OMEPRAZOLE. [Concomitant]
     Active Substance: OMEPRAZOLE
  8. ARMOUR THYROID [Concomitant]
     Active Substance: THYROID, PORCINE
  9. METRONIDAZOLE. [Concomitant]
     Active Substance: METRONIDAZOLE
  10. TIROSINT [Suspect]
     Active Substance: LEVOTHYROXINE SODIUM
  11. MONTELUKAST [Concomitant]
     Active Substance: MONTELUKAST SODIUM
  12. OXYCODONE [Concomitant]
     Active Substance: OXYCODONE

REACTIONS (9)
  - Palpitations [None]
  - Meniscus injury [None]
  - Arthritis [None]
  - Drug hypersensitivity [None]
  - Panic attack [None]
  - Formication [None]
  - Arthralgia [None]
  - Dyspnoea [None]
  - Inflammation [None]
